FAERS Safety Report 17395983 (Version 1)
Quarter: 2020Q1

REPORT INFORMATION
  Report Type: Spontaneous
  Country: ES (occurrence: ES)
  Receive Date: 20200210
  Receipt Date: 20200210
  Transmission Date: 20200409
  Serious: Yes (Other)
  Sender: FDA-Public Use
  Company Number: ES-MYLANLABS-2020M1013543

PATIENT
  Age: 56 Year
  Sex: Female

DRUGS (6)
  1. AMITRIPTYLINE [Concomitant]
     Active Substance: AMITRIPTYLINE
     Indication: ANALGESIC THERAPY
     Dosage: 20 MILLIGRAM, QD
  2. PALBOCICLIB [Suspect]
     Active Substance: PALBOCICLIB
     Indication: PRODUCT USED FOR UNKNOWN INDICATION
     Dosage: 125 MG, CYCLIC 3 WEEKS ON, 1 WEEK OFF
     Route: 048
     Dates: start: 20180607
  3. ZOLEDRONIC ACID. [Concomitant]
     Active Substance: ZOLEDRONIC ACID
     Dosage: UNK
     Dates: start: 201811
  4. PALBOCICLIB [Suspect]
     Active Substance: PALBOCICLIB
     Dosage: 100 UNK
     Route: 048
     Dates: start: 20180607
  5. FULVESTRANT. [Suspect]
     Active Substance: FULVESTRANT
     Dosage: 500 MG, UNK (28 DAYS WITH EXTRA DOSE ON DAY 15 OF THE FIRST MONTH) EVERY FOUR WEEKS
     Route: 030
     Dates: start: 20180518
  6. MORPHINE                           /00036302/ [Concomitant]
     Active Substance: MORPHINE
     Indication: ANALGESIC THERAPY
     Dosage: 20 MILLIGRAM, BID

REACTIONS (8)
  - Fracture [Unknown]
  - Decreased appetite [Recovered/Resolved]
  - Oesophagitis [Unknown]
  - Mucosal inflammation [Unknown]
  - Asthenia [Not Recovered/Not Resolved]
  - Metastases to bone [Unknown]
  - Dyspnoea [Recovered/Resolved]
  - Nausea [Recovered/Resolved]

NARRATIVE: CASE EVENT DATE: 201805
